FAERS Safety Report 7331073-4 (Version None)
Quarter: 2011Q1

REPORT INFORMATION
  Report Type: 
  Country: None (occurrence: None)
  Receive Date: 20110228
  Receipt Date: 20110228
  Transmission Date: 20110831
  Serious: Yes (Life-Threatening)
  Sender: FDA-Public Use
  Company Number: None

PATIENT
  Age: 57 Year
  Sex: Female
  Weight: 66.2252 kg

DRUGS (1)
  1. CLINDAMYCIN [Suspect]
     Indication: TONSILLITIS
     Dosage: 300MG 4 TIMES/DAY ORALLY
     Route: 048
     Dates: start: 20100926, end: 20100928

REACTIONS (1)
  - HYPERSENSITIVITY [None]
